FAERS Safety Report 14891946 (Version 1)
Quarter: 2018Q2

REPORT INFORMATION
  Report Type: Spontaneous
  Country: US (occurrence: US)
  Receive Date: 20180426
  Receipt Date: 20180426
  Transmission Date: 20180711
  Serious: Yes (Other)
  Sender: FDA-Public Use
  Company Number: None

PATIENT
  Sex: Female
  Weight: 77.4 kg

DRUGS (23)
  1. QUELL DEVICE [Concomitant]
  2. FISH OIL [Concomitant]
     Active Substance: FISH OIL
  3. VITAMIN D3 [Concomitant]
     Active Substance: CHOLECALCIFEROL
  4. MULTI-VITAMIN B COMPLEX [Concomitant]
  5. CHROMIUM PICOLINATE [Concomitant]
     Active Substance: CHROMIUM PICOLINATE
  6. LEVOTHYROXINE. [Concomitant]
     Active Substance: LEVOTHYROXINE
  7. ALPHA LIPOIC ACID [Concomitant]
     Active Substance: .ALPHA.-LIPOIC ACID
  8. TURMERIC [Concomitant]
     Active Substance: HERBALS\TURMERIC
  9. CINNAMON. [Concomitant]
     Active Substance: CINNAMON
  10. CALCIUM POLYCARBONATE [Concomitant]
  11. SENIOR MULTIVITAMIN COMPLEX [Concomitant]
  12. GINKGO BILOBA [Concomitant]
     Active Substance: GINKGO
  13. GLIMEPIRIDE. [Concomitant]
     Active Substance: GLIMEPIRIDE
  14. TRAMADOL. [Concomitant]
     Active Substance: TRAMADOL
  15. MAGNESIUM MALATE [Concomitant]
  16. LISINOPRIL. [Suspect]
     Active Substance: LISINOPRIL
     Indication: MICROALBUMINURIA
     Dosage: ?          QUANTITY:1 DF DOSAGE FORM;?
     Route: 048
  17. PEPPERMINT-FENNEL-GINGER GELS [Concomitant]
  18. CO-ENZYME Q [Concomitant]
  19. METFORMIN [Concomitant]
     Active Substance: METFORMIN HYDROCHLORIDE
  20. EYE SUPPORT VITAMIN-SUPPLEMENT COMPLEX [Concomitant]
  21. DULOXETINE. [Concomitant]
     Active Substance: DULOXETINE
  22. PROBIOTIC [Concomitant]
     Active Substance: PROBIOTICS NOS
  23. GLUCOSAMINE CHONDROITIN- MSM COMPLEX [Concomitant]

REACTIONS (1)
  - Weight increased [None]
